FAERS Safety Report 4564168-9 (Version None)
Quarter: 2005Q1

REPORT INFORMATION
  Report Type: 
  Country: None (occurrence: None)
  Receive Date: 20050126
  Receipt Date: 20050113
  Transmission Date: 20050727
  Serious: Yes (Other)
  Sender: FDA-Public Use
  Company Number: 2005013810

PATIENT
  Age: 59 Year
  Sex: Male

DRUGS (4)
  1. BEXTRA [Suspect]
     Indication: ARTHRALGIA
     Dosage: 10 MG (10 MG, 1 IN 1 D), ORAL
     Route: 048
     Dates: start: 20041203, end: 20041211
  2. BENDROFLUMETHIAZIDE (BENDROFLUMETHIAZIDE) [Concomitant]
  3. MODAFINIL [Concomitant]
  4. IBUPROFEN [Concomitant]

REACTIONS (1)
  - DERMATITIS ALLERGIC [None]
